FAERS Safety Report 4716557-7 (Version None)
Quarter: 2005Q3

REPORT INFORMATION
  Report Type: 
  Country: None (occurrence: None)
  Receive Date: 20050718
  Receipt Date: 20050601
  Transmission Date: 20060218
  Serious: Yes (Other)
  Sender: FDA-Public Use
  Company Number: TRP_0144_2005

PATIENT
  Age: 53 Year
  Sex: Male

DRUGS (11)
  1. RIBASPHERE [Suspect]
     Indication: HEPATITIS C
     Dosage: 800 MG QDAY PO
     Route: 048
     Dates: start: 20041201
  2. INFERGEN [Suspect]
     Indication: HEPATITIS C
     Dosage: 15 MCG QDAY SC
     Route: 058
     Dates: start: 20041201, end: 20050522
  3. INFERGEN [Suspect]
     Indication: HEPATITIS C
     Dosage: 9 MCG QDAY SC
     Route: 058
     Dates: start: 20050523
  4. INTERFERON GAMMA-1B/ INTERMUNE [Suspect]
     Indication: HEPATITIS C
     Dosage: 50 MCG QDAY SC
     Route: 058
     Dates: start: 20041201, end: 20050522
  5. INTERFERON  GAMMA-1B/INTERMUNE [Suspect]
     Indication: HEPATITIS C
     Dosage: 25 MCG QDAY SC
     Route: 058
     Dates: start: 20050523
  6. WEELLBUTRIN [Concomitant]
  7. PEPCID [Concomitant]
  8. CYMBALTA [Concomitant]
  9. LOPID [Concomitant]
  10. LORATADINE [Concomitant]
  11. TRAZADONE [Concomitant]

REACTIONS (5)
  - ALANINE AMINOTRANSFERASE INCREASED [None]
  - ASPARTATE AMINOTRANSFERASE INCREASED [None]
  - DRUG TOXICITY [None]
  - NEUTROPHIL COUNT DECREASED [None]
  - WHITE BLOOD CELL COUNT DECREASED [None]
